FAERS Safety Report 10167235 (Version 1)
Quarter: 2014Q2

REPORT INFORMATION
  Report Type: Spontaneous
  Country: US (occurrence: None)
  Receive Date: 20140509
  Receipt Date: 20140509
  Transmission Date: 20141212
  Serious: Yes (Other)
  Sender: FDA-Public Use
  Company Number: None

PATIENT
  Age: 67 Year
  Sex: Female
  Weight: 49.9 kg

DRUGS (1)
  1. FORTEO [Suspect]
     Indication: OSTEOPOROSIS
     Dosage: 20 MCG, ONCE DAILY, GIVEN INTO/UNDER THE SKIN?
     Dates: start: 20120117, end: 20131002

REACTIONS (2)
  - Tooth fracture [None]
  - Calcinosis [None]
